FAERS Safety Report 7538380-0 (Version None)
Quarter: 2011Q2

REPORT INFORMATION
  Report Type: 
  Country: None (occurrence: None)
  Receive Date: 20110609
  Receipt Date: 20110607
  Transmission Date: 20111010
  Serious: Yes (Hospitalization, Other)
  Sender: FDA-Public Use
  Company Number: JP-PFIZER INC-2011121245

PATIENT
  Age: 80 Year
  Sex: Male

DRUGS (3)
  1. ARTZ [Concomitant]
     Indication: OSTEOARTHRITIS
     Dosage: UNK
     Route: 014
  2. CELECOXIB [Suspect]
     Dosage: 200 MG/DAY
     Route: 048
     Dates: start: 20101110, end: 20110314
  3. TIZANIDINE HYDROCHLORIDE [Concomitant]
     Dosage: UNK
     Route: 048

REACTIONS (3)
  - HAEMATEMESIS [None]
  - DUODENAL ULCER [None]
  - DYSARTHRIA [None]
